FAERS Safety Report 22050518 (Version 1)
Quarter: 2023Q1

REPORT INFORMATION
  Report Type: Spontaneous
  Country: CA (occurrence: CA)
  Receive Date: 20230301
  Receipt Date: 20230301
  Transmission Date: 20230418
  Serious: Yes (Death, Life-Threatening, Hospitalization, Other)
  Sender: FDA-Public Use
  Company Number: CA-002147023-NVSC2023CA046602

PATIENT
  Age: 11 Year
  Sex: Male

DRUGS (9)
  1. METHOTREXATE [Suspect]
     Active Substance: METHOTREXATE
     Indication: Acute lymphocytic leukaemia
     Dosage: 20 MG
     Route: 037
  2. METHOTREXATE [Suspect]
     Active Substance: METHOTREXATE
     Dosage: 20 MG
     Route: 037
  3. LEUCOVORIN [Suspect]
     Active Substance: LEUCOVORIN
     Indication: Acute lymphocytic leukaemia
     Dosage: 50 MG
     Route: 037
  4. LEUCOVORIN [Suspect]
     Active Substance: LEUCOVORIN
     Indication: Overdose
     Dosage: 50 MG
     Route: 037
  5. HYDROCORTISONE [Concomitant]
     Active Substance: HYDROCORTISONE
     Indication: Acute lymphocytic leukaemia
     Dosage: UNK MG
     Route: 037
  6. HYDROCORTISONE [Concomitant]
     Active Substance: HYDROCORTISONE
     Dosage: 24 MG
     Route: 037
  7. CYTARABINE [Concomitant]
     Active Substance: CYTARABINE
     Indication: Acute lymphocytic leukaemia
     Dosage: UNK (FORMULATION: POWDER FOR SOLUTION)
     Route: 037
  8. CYTARABINE [Concomitant]
     Active Substance: CYTARABINE
     Dosage: 36 MG
     Route: 037
  9. BACTRIM [Concomitant]
     Active Substance: SULFAMETHOXAZOLE\TRIMETHOPRIM
     Indication: Acute lymphocytic leukaemia
     Dosage: UNK
     Route: 065

REACTIONS (9)
  - Brain oedema [Fatal]
  - Neurotoxicity [Fatal]
  - Seizure [Fatal]
  - Pruritus [Fatal]
  - Accidental overdose [Fatal]
  - Incorrect route of product administration [Fatal]
  - Brain death [Fatal]
  - Incorrect dose administered [Fatal]
  - Overdose [Fatal]
